FAERS Safety Report 6297546-0 (Version None)
Quarter: 2009Q3

REPORT INFORMATION
  Report Type: 
  Country: None (occurrence: None)
  Receive Date: 20090805
  Receipt Date: 20090727
  Transmission Date: 20100115
  Serious: Yes (Hospitalization)
  Sender: FDA-Public Use
  Company Number: US-ASTRAZENECA-2009SE06014

PATIENT
  Age: 67 Year
  Sex: Male

DRUGS (9)
  1. CRESTOR [Suspect]
     Route: 048
     Dates: start: 20050101
  2. CRESTOR [Suspect]
     Route: 048
  3. PLAVIX [Suspect]
  4. TRICOR [Concomitant]
  5. NIASPAM [Concomitant]
  6. NORVASC [Concomitant]
  7. ASPIRIN [Concomitant]
  8. METOPROLOL TARTRATE [Concomitant]
  9. QUINOPRIL [Concomitant]
     Indication: HYPERTENSION

REACTIONS (2)
  - ARTERIAL REPAIR [None]
  - MYOCARDIAL INFARCTION [None]
